FAERS Safety Report 7511178-5 (Version None)
Quarter: 2011Q2

REPORT INFORMATION
  Report Type: 
  Country: None (occurrence: None)
  Receive Date: 20110531
  Receipt Date: 20091122
  Transmission Date: 20111010
  Serious: Yes (Death, Other)
  Sender: FDA-Public Use
  Company Number: US-BAYER-200939813NA

PATIENT
  Age: 54 Year
  Sex: Female
  Weight: 97 kg

DRUGS (10)
  1. TRASYLOL [Suspect]
     Indication: MITRAL VALVE REPLACEMENT
     Dosage: 1 ML, ONCE, INITIAL TEST DOSE
     Route: 042
     Dates: start: 20070511
  2. LASIX [Concomitant]
     Route: 048
  3. TRASYLOL [Suspect]
     Indication: CARDIAC OPERATION
     Route: 042
     Dates: start: 20031225
  4. VANCOMYCIN [Concomitant]
     Route: 042
  5. ACETYLSALICYLIC ACID SRT [Concomitant]
     Dosage: 650 MG, QD
     Route: 048
  6. METOPROLOL TARTRATE [Concomitant]
     Dosage: 50 MG, BID
     Route: 048
  7. TRASYLOL [Suspect]
     Indication: AORTIC VALVE REPLACEMENT
     Dosage: 200 ML LOADING DOSE
     Route: 042
     Dates: start: 20070511
  8. TRASYLOL [Suspect]
     Dosage: 50 ML/HOUR INFUSION FOR 7.5 HOURS
     Route: 042
     Dates: start: 20070511
  9. HUMULIN 70/30 [Concomitant]
     Dosage: 10 U,
     Route: 058
  10. ALBUTEROL SULFATE AUTOHALER [Concomitant]
     Dosage: 2 PUFFS DAILY

REACTIONS (13)
  - RENAL FAILURE [None]
  - MULTI-ORGAN FAILURE [None]
  - PAIN [None]
  - DEATH [None]
  - ANXIETY [None]
  - RENAL INJURY [None]
  - INJURY [None]
  - RENAL IMPAIRMENT [None]
  - STRESS [None]
  - ANHEDONIA [None]
  - EMOTIONAL DISTRESS [None]
  - UNEVALUABLE EVENT [None]
  - FEAR [None]
